FAERS Safety Report 8367093-0 (Version None)
Quarter: 2012Q2

REPORT INFORMATION
  Report Type: 
  Country: None (occurrence: None)
  Receive Date: 20120517
  Receipt Date: 20120509
  Transmission Date: 20120825
  Serious: Yes (Death)
  Sender: FDA-Public Use
  Company Number: US-INCYTE CORPORATION-2012IN000774

PATIENT
  Sex: Female

DRUGS (1)
  1. JAKAFI [Suspect]
     Dosage: UNSPECIFIED

REACTIONS (1)
  - ROAD TRAFFIC ACCIDENT [None]
